FAERS Safety Report 11334473 (Version 2)
Quarter: 2015Q3

REPORT INFORMATION
  Report Type: Report from Study
  Country: NO (occurrence: NO)
  Receive Date: 20150804
  Receipt Date: 20150814
  Transmission Date: 20151125
  Serious: Yes (Hospitalization)
  Sender: FDA-Public Use
  Company Number: NO-ROCHE-1603814

PATIENT
  Age: 47 Year
  Sex: Female
  Weight: 66 kg

DRUGS (6)
  1. POLARAMIN [Concomitant]
     Active Substance: DEXCHLORPHENIRAMINE MALEATE
     Route: 065
     Dates: start: 20141009
  2. DUPHALAC [Concomitant]
     Active Substance: LACTULOSE
     Dosage: 667 MG/ML
     Route: 065
     Dates: start: 20140919
  3. DECADRON [Concomitant]
     Active Substance: DEXAMETHASONE
     Route: 065
     Dates: start: 20141009
  4. TRASTUZUMAB EMTANSINE [Suspect]
     Active Substance: ADO-TRASTUZUMAB EMTANSINE
     Indication: HER-2 POSITIVE BREAST CANCER
     Dosage: DATE OF LAST DOSE PRIOR TO SAE: 11/JUN/2015?DATE OF LAST DOSE PRIOR TO RECURRANCE OF SAE : 02/JUL/20
     Route: 042
     Dates: start: 20140918
  5. AFIPRAN [Concomitant]
     Route: 065
     Dates: start: 20141120
  6. PARALGIN FORTE (CODEINE PHOSPHATE/PARACETAMOL) [Concomitant]
     Dosage: 400/30 MG
     Route: 065
     Dates: start: 20150129

REACTIONS (1)
  - Upper respiratory tract infection [Recovered/Resolved]

NARRATIVE: CASE EVENT DATE: 20150627
